FAERS Safety Report 8287537-2 (Version None)
Quarter: 2012Q2

REPORT INFORMATION
  Report Type: 
  Country: None (occurrence: None)
  Receive Date: 20120416
  Receipt Date: 20120406
  Transmission Date: 20120825
  Serious: Yes (Hospitalization)
  Sender: FDA-Public Use
  Company Number: US-BAYER-2012-034000

PATIENT
  Age: 25 Year
  Sex: Female
  Weight: 107.3 kg

DRUGS (7)
  1. RANITIDINE [Concomitant]
     Dosage: 300 MG, UNK
     Route: 048
     Dates: start: 20060725
  2. CALNATE [Concomitant]
     Dosage: UNK
     Route: 048
     Dates: start: 20060105, end: 20060627
  3. ELESTAT [Concomitant]
     Dosage: UNK UNK, BID AS NEEDED
     Dates: start: 20060710
  4. CEPHALEXIN [Concomitant]
     Dosage: 500 MG, UNK
     Route: 048
     Dates: start: 20060519
  5. IBUPROFEN [Concomitant]
     Dosage: 600 MG, UNK
     Route: 048
     Dates: start: 20060718
  6. YASMIN [Suspect]
  7. TOBRADEX [Concomitant]
     Dosage: UNK UNK, QID
     Dates: start: 20060710

REACTIONS (1)
  - PULMONARY EMBOLISM [None]
